FAERS Safety Report 5356071-1 (Version None)
Quarter: 2007Q2

REPORT INFORMATION
  Report Type: 
  Country: None (occurrence: None)
  Receive Date: 20070613
  Receipt Date: 20070531
  Transmission Date: 20071010
  Serious: Yes (Other)
  Sender: FDA-Public Use
  Company Number: US-SHR-US-2007-006604

PATIENT
  Age: 33 Year
  Sex: Male
  Weight: 57.596 kg

DRUGS (24)
  1. MAGNEVIST [Suspect]
     Indication: ANGIOGRAM
     Dosage: UNK, 1 DOSE
     Route: 042
     Dates: start: 20030210, end: 20030210
  2. MAGNEVIST [Suspect]
     Dosage: 30 ML, 1 DOSE
     Route: 042
     Dates: start: 20060608, end: 20060608
  3. MAGNEVIST [Suspect]
     Dosage: 40 ML, 1 DOSE
     Route: 042
     Dates: start: 20060613, end: 20060613
  4. ULTRAVIST (PHARMACY BULK) [Concomitant]
     Dosage: 40 ML, 1 DOSE
     Route: 065
     Dates: start: 20060723, end: 20060723
  5. RENAGEL [Concomitant]
     Dosage: 2000 MG, 3X/DAY
     Route: 048
  6. ATENOLOL [Concomitant]
  7. CLONIDINE [Concomitant]
  8. CYCLOBENZAPRINE HCL [Concomitant]
  9. ATIVAN [Concomitant]
  10. MINOXIDIL [Concomitant]
  11. ZANTAC [Concomitant]
  12. PAXIL [Concomitant]
  13. ACCUPRIL [Concomitant]
  14. NEPHROCAPS [Concomitant]
  15. NEXIUM [Concomitant]
  16. FLEXERIL [Concomitant]
  17. COUMADIN [Concomitant]
  18. KAYEXALATE [Concomitant]
  19. ESZOPICLONE [Concomitant]
  20. CLOBETASOL PROPIONATE [Concomitant]
  21. LOVENOX [Concomitant]
  22. DILAUDID [Concomitant]
  23. TRENTAL - SLOW RELEASE [Concomitant]
  24. SARNA [Concomitant]

REACTIONS (7)
  - BLOOD PRESSURE INCREASED [None]
  - NEPHROGENIC FIBROSING DERMOPATHY [None]
  - OEDEMA PERIPHERAL [None]
  - PRURITUS [None]
  - SUPERIOR VENA CAVAL OCCLUSION [None]
  - THROMBOSIS [None]
  - VEIN DISORDER [None]
